FAERS Safety Report 25230352 (Version 1)
Quarter: 2025Q2

REPORT INFORMATION
  Report Type: Spontaneous
  Country: US (occurrence: US)
  Receive Date: 20250423
  Receipt Date: 20250423
  Transmission Date: 20250717
  Serious: Yes (Life-Threatening, Hospitalization)
  Sender: MYLAN
  Company Number: US-MYLANLABS-2025M1034420

PATIENT
  Age: 32 Year
  Sex: Female
  Weight: 72 kg

DRUGS (4)
  1. ACETAMINOPHEN [Suspect]
     Active Substance: ACETAMINOPHEN
     Indication: Product used for unknown indication
     Dosage: 4.5 GRAM, QD
  2. ACETAMINOPHEN [Suspect]
     Active Substance: ACETAMINOPHEN
     Dosage: 4.5 GRAM, QD
     Route: 065
  3. ACETAMINOPHEN [Suspect]
     Active Substance: ACETAMINOPHEN
     Dosage: 4.5 GRAM, QD
     Route: 065
  4. ACETAMINOPHEN [Suspect]
     Active Substance: ACETAMINOPHEN
     Dosage: 4.5 GRAM, QD

REACTIONS (11)
  - Acute hepatic failure [Recovering/Resolving]
  - Cholecystitis [Recovering/Resolving]
  - Acute kidney injury [Recovering/Resolving]
  - Brain oedema [Recovering/Resolving]
  - Respiratory failure [Recovering/Resolving]
  - Shock [Recovering/Resolving]
  - Thrombocytopenia [Recovering/Resolving]
  - Gastrointestinal haemorrhage [Recovering/Resolving]
  - Atrial fibrillation [Recovering/Resolving]
  - Toxicity to various agents [Recovering/Resolving]
  - Coagulopathy [Recovering/Resolving]
